FAERS Safety Report 6277079-8 (Version None)
Quarter: 2009Q3

REPORT INFORMATION
  Report Type: 
  Country: None (occurrence: None)
  Receive Date: 20090722
  Receipt Date: 20090430
  Transmission Date: 20100115
  Serious: No
  Sender: FDA-Public Use
  Company Number: US-BRISTOL-MYERS SQUIBB COMPANY-14454748

PATIENT
  Age: 77 Year
  Sex: Male
  Weight: 91 kg

DRUGS (7)
  1. COUMADIN [Suspect]
     Indication: ATRIAL FIBRILLATION
     Dosage: DURATION OF THERAPY:4-5 MONTHS AGO
     Route: 048
     Dates: start: 20080301
  2. SYNTHROID [Concomitant]
  3. ATENOLOL [Concomitant]
  4. LOSARTAN POTASSIUM [Concomitant]
  5. RESTORIL [Concomitant]
  6. LORAZEPAM [Concomitant]
  7. PRILOSEC [Concomitant]

REACTIONS (1)
  - SKIN DISCOLOURATION [None]
